FAERS Safety Report 7478172-4 (Version None)
Quarter: 2011Q2

REPORT INFORMATION
  Report Type: 
  Country: None (occurrence: None)
  Receive Date: 20110513
  Receipt Date: 20110502
  Transmission Date: 20111010
  Serious: No
  Sender: FDA-Public Use
  Company Number: PHHY2010US02703

PATIENT
  Sex: Female

DRUGS (10)
  1. DIOVAN [Suspect]
  2. PLAVIX [Concomitant]
  3. ANTIBIOTICS [Concomitant]
  4. ASPIRIN [Concomitant]
  5. DIOVAN [Suspect]
     Dosage: 320 MG, UNK
     Dates: start: 20090501
  6. BYSTOLIC [Concomitant]
  7. STATINS [Concomitant]
  8. DIOVAN [Suspect]
     Dosage: DIOVAN AT 160 MG A DAY
  9. NEXIUM [Concomitant]
  10. DIOVAN [Suspect]
     Dosage: 2 DF, 160 MG  A DAY

REACTIONS (5)
  - RASH [None]
  - PRURITUS [None]
  - FEELING COLD [None]
  - RENAL DISORDER [None]
  - CHILLS [None]
